FAERS Safety Report 16902632 (Version 5)
Quarter: 2022Q3

REPORT INFORMATION
  Report Type: Spontaneous
  Country: US (occurrence: None)
  Receive Date: 20191010
  Receipt Date: 20220901
  Transmission Date: 20221026
  Serious: Yes (Hospitalization, Other)
  Sender: FDA-Public Use
  Company Number: 2019SF40877

PATIENT
  Age: 49 Year
  Sex: Male
  Weight: 117.9 kg

DRUGS (120)
  1. FARXIGA [Suspect]
     Active Substance: DAPAGLIFLOZIN PROPANEDIOL
     Indication: Type 2 diabetes mellitus
     Route: 048
     Dates: start: 20140623
  2. FARXIGA [Suspect]
     Active Substance: DAPAGLIFLOZIN PROPANEDIOL
     Indication: Weight decreased
     Route: 048
     Dates: start: 20140623
  3. FARXIGA [Suspect]
     Active Substance: DAPAGLIFLOZIN PROPANEDIOL
     Indication: Blood pressure decreased
     Route: 048
     Dates: start: 20140623
  4. FARXIGA [Suspect]
     Active Substance: DAPAGLIFLOZIN PROPANEDIOL
     Indication: Type 2 diabetes mellitus
     Dosage: 10.0MG UNKNOWN
     Route: 048
     Dates: start: 20140902
  5. FARXIGA [Suspect]
     Active Substance: DAPAGLIFLOZIN PROPANEDIOL
     Indication: Weight decreased
     Dosage: 10.0MG UNKNOWN
     Route: 048
     Dates: start: 20140902
  6. FARXIGA [Suspect]
     Active Substance: DAPAGLIFLOZIN PROPANEDIOL
     Indication: Blood pressure decreased
     Dosage: 10.0MG UNKNOWN
     Route: 048
     Dates: start: 20140902
  7. FARXIGA [Suspect]
     Active Substance: DAPAGLIFLOZIN PROPANEDIOL
     Indication: Type 2 diabetes mellitus
     Dosage: 10.0MG UNKNOWN
     Route: 048
     Dates: start: 20141130
  8. FARXIGA [Suspect]
     Active Substance: DAPAGLIFLOZIN PROPANEDIOL
     Indication: Weight decreased
     Dosage: 10.0MG UNKNOWN
     Route: 048
     Dates: start: 20141130
  9. FARXIGA [Suspect]
     Active Substance: DAPAGLIFLOZIN PROPANEDIOL
     Indication: Blood pressure decreased
     Dosage: 10.0MG UNKNOWN
     Route: 048
     Dates: start: 20141130
  10. FARXIGA [Suspect]
     Active Substance: DAPAGLIFLOZIN PROPANEDIOL
     Indication: Type 2 diabetes mellitus
     Dosage: 10.0MG UNKNOWN
     Route: 048
     Dates: start: 20140623, end: 20141130
  11. FARXIGA [Suspect]
     Active Substance: DAPAGLIFLOZIN PROPANEDIOL
     Indication: Weight decreased
     Dosage: 10.0MG UNKNOWN
     Route: 048
     Dates: start: 20140623, end: 20141130
  12. FARXIGA [Suspect]
     Active Substance: DAPAGLIFLOZIN PROPANEDIOL
     Indication: Blood pressure decreased
     Dosage: 10.0MG UNKNOWN
     Route: 048
     Dates: start: 20140623, end: 20141130
  13. ACETAMINOPHEN\OXYCODONE HYDROCHLORIDE [Concomitant]
     Active Substance: ACETAMINOPHEN\OXYCODONE HYDROCHLORIDE
     Dosage: 5-325 MG
     Route: 065
     Dates: start: 20181127
  14. HYDROXYZINE [Concomitant]
     Active Substance: HYDROXYZINE HYDROCHLORIDE
     Route: 048
     Dates: start: 20180317
  15. HYDROXYZINE [Concomitant]
     Active Substance: HYDROXYZINE HYDROCHLORIDE
     Route: 048
     Dates: start: 20180202
  16. CICLOPIROX [Concomitant]
     Active Substance: CICLOPIROX
     Route: 065
     Dates: start: 20180214
  17. IVERMECTIN [Concomitant]
     Active Substance: IVERMECTIN
     Route: 048
     Dates: start: 20180105
  18. FLUCONAZOLE [Concomitant]
     Active Substance: FLUCONAZOLE
     Route: 048
     Dates: start: 20180104
  19. FLUCONAZOLE [Concomitant]
     Active Substance: FLUCONAZOLE
     Route: 048
     Dates: start: 20171206
  20. AZITHROMYCIN [Concomitant]
     Active Substance: AZITHROMYCIN
     Route: 048
     Dates: start: 20171005
  21. METHYLPREDNISOLONE [Concomitant]
     Active Substance: METHYLPREDNISOLONE
     Indication: Inflammation
     Route: 065
     Dates: start: 20171005
  22. PREDNISONE [Concomitant]
     Active Substance: PREDNISONE
     Route: 048
     Dates: start: 20170427
  23. PREDNISONE [Concomitant]
     Active Substance: PREDNISONE
     Route: 048
     Dates: start: 20170322
  24. OSELTAMIVIR [Concomitant]
     Active Substance: OSELTAMIVIR
     Route: 048
     Dates: start: 20170322
  25. CLARITHROMYCIN [Concomitant]
     Active Substance: CLARITHROMYCIN
     Route: 048
     Dates: start: 20170322
  26. LIDOCAINE [Concomitant]
     Active Substance: LIDOCAINE
     Indication: Pain
     Route: 065
     Dates: start: 20170104
  27. VOLTAREN [Concomitant]
     Active Substance: DICLOFENAC SODIUM
     Route: 065
     Dates: start: 20161226
  28. OMEPRAZOLE [Concomitant]
     Active Substance: OMEPRAZOLE
     Indication: Gastrooesophageal reflux disease
     Route: 048
     Dates: start: 2013
  29. OMEPRAZOLE [Concomitant]
     Active Substance: OMEPRAZOLE
     Indication: Gastrooesophageal reflux disease
     Route: 048
     Dates: start: 20161117
  30. OMEPRAZOLE [Concomitant]
     Active Substance: OMEPRAZOLE
     Indication: Gastrooesophageal reflux disease
     Route: 048
     Dates: start: 20160930
  31. OMEPRAZOLE [Concomitant]
     Active Substance: OMEPRAZOLE
     Indication: Gastrooesophageal reflux disease
     Route: 048
     Dates: start: 20150622
  32. OMEPRAZOLE [Concomitant]
     Active Substance: OMEPRAZOLE
     Indication: Gastrooesophageal reflux disease
     Route: 048
     Dates: start: 20161218
  33. CLINDAMYCIN [Concomitant]
     Active Substance: CLINDAMYCIN
     Route: 048
     Dates: start: 20161028
  34. AMOXICILLIN\CLAVULANATE POTASSIUM [Concomitant]
     Active Substance: AMOXICILLIN\CLAVULANATE POTASSIUM
     Dosage: 875-125 MG
     Route: 048
     Dates: start: 20160930
  35. MONTELUKAST [Concomitant]
     Active Substance: MONTELUKAST SODIUM
     Route: 048
     Dates: start: 20160912
  36. CLOTRIMAZOLE/BECLOMETASONE [Concomitant]
     Route: 065
     Dates: start: 20160720
  37. CEPHALEXIN [Concomitant]
     Active Substance: CEPHALEXIN
     Route: 048
     Dates: start: 20160718
  38. AZELASTINE [Concomitant]
     Active Substance: AZELASTINE
     Dosage: 205.5 MCG; UNKNOWN
     Route: 065
     Dates: start: 20160426
  39. VICTOZA [Concomitant]
     Active Substance: LIRAGLUTIDE
     Dosage: 18 MG/3 ML
     Route: 065
     Dates: start: 20160415
  40. CODEINE-GUAIFEN [Concomitant]
     Dosage: 10-100 MG
     Route: 065
     Dates: start: 20160321
  41. ADVAIR HFA [Concomitant]
     Active Substance: FLUTICASONE PROPIONATE\SALMETEROL XINAFOATE
     Indication: Asthma
     Dosage: 250-50 MCG
     Route: 065
     Dates: start: 20160321
  42. INVOKANA [Concomitant]
     Active Substance: CANAGLIFLOZIN
     Indication: Type 2 diabetes mellitus
     Route: 048
     Dates: start: 20151128
  43. INVOKANA [Concomitant]
     Active Substance: CANAGLIFLOZIN
     Indication: Type 2 diabetes mellitus
     Route: 048
     Dates: start: 20151103
  44. ATROVENT [Concomitant]
     Active Substance: IPRATROPIUM BROMIDE
     Dosage: 17 MCG
     Route: 065
     Dates: start: 20151012
  45. LEVOFLOXACIN [Concomitant]
     Active Substance: LEVOFLOXACIN
     Dosage: 750 MCG
     Route: 048
     Dates: start: 20151009
  46. AMMONIUM CHLORIDE\DEXTROMETHORPHAN\SODIUM CITRATE [Concomitant]
     Active Substance: AMMONIUM CHLORIDE\DEXTROMETHORPHAN\SODIUM CITRATE
     Dosage: 10-100 MG
     Route: 065
     Dates: start: 20150929
  47. DOXYCYCLINE HYCLATE [Concomitant]
     Active Substance: DOXYCYCLINE HYCLATE
     Route: 065
     Dates: start: 20150724
  48. DULOXETINE [Concomitant]
     Active Substance: DULOXETINE
     Indication: Depression
     Route: 048
     Dates: start: 20150617
  49. MINOCYCLINE [Concomitant]
     Active Substance: MINOCYCLINE HYDROCHLORIDE
     Route: 048
     Dates: start: 20150509
  50. IBUPROFEN [Concomitant]
     Active Substance: IBUPROFEN
     Route: 048
     Dates: start: 20150323
  51. HYDROCORTISONE [Concomitant]
     Active Substance: HYDROCORTISONE
     Route: 065
     Dates: start: 20150323
  52. ZYVOX [Concomitant]
     Active Substance: LINEZOLID
     Route: 048
     Dates: start: 20150323
  53. CELECOXIB/CELEBREX [Concomitant]
     Indication: Pain
     Route: 048
     Dates: start: 20141229
  54. ECONAZOLE NITRATE [Concomitant]
     Active Substance: ECONAZOLE NITRATE
     Route: 065
     Dates: start: 20141227
  55. METAXALONE [Concomitant]
     Active Substance: METAXALONE
     Indication: Muscle relaxant therapy
     Route: 048
     Dates: start: 20140905
  56. METHOCARBAMOL [Concomitant]
     Active Substance: METHOCARBAMOL
     Indication: Muscle relaxant therapy
     Route: 048
     Dates: start: 20140724
  57. MOMETASONE FUROATE [Concomitant]
     Active Substance: MOMETASONE FUROATE
     Indication: Asthma
     Route: 065
     Dates: start: 20140702
  58. MELOXICAM [Concomitant]
     Active Substance: MELOXICAM
     Route: 048
     Dates: start: 20140617
  59. GABAPENTIN [Concomitant]
     Active Substance: GABAPENTIN
     Route: 048
     Dates: start: 20140401
  60. SYMBICORT [Concomitant]
     Active Substance: BUDESONIDE\FORMOTEROL FUMARATE DIHYDRATE
     Dosage: 160-4.5 MCG
     Route: 065
     Dates: start: 20131121
  61. SUCRALFATE [Concomitant]
     Active Substance: SUCRALFATE
     Dosage: 1 GM^ UNKNOWN
     Route: 048
     Dates: start: 20130814
  62. DILAUDID [Concomitant]
     Active Substance: HYDROMORPHONE HYDROCHLORIDE
     Indication: Pain
     Dosage: 1 MG/ML; EVERY 10 MIN, PRN
     Route: 042
     Dates: start: 20141231
  63. GLUCOPHAGE/METFORMIN [Concomitant]
     Indication: Diabetes mellitus
     Route: 048
     Dates: start: 2013
  64. GLUCOPHAGE/METFORMIN [Concomitant]
     Indication: Diabetes mellitus
     Dates: start: 20150622
  65. GLUCOPHAGE/METFORMIN [Concomitant]
     Indication: Diabetes mellitus
     Route: 048
     Dates: start: 20141231
  66. ZESTRIL [Concomitant]
     Active Substance: LISINOPRIL
     Route: 048
     Dates: start: 20141231
  67. ZESTRIL [Concomitant]
     Active Substance: LISINOPRIL
     Dates: start: 20150622
  68. VITAMINS [Concomitant]
     Active Substance: VITAMINS
     Dosage: DAILY
     Route: 048
     Dates: start: 20141231
  69. COLACE [Concomitant]
     Active Substance: DOCUSATE SODIUM
     Indication: Constipation
     Dosage: PRN
     Route: 048
     Dates: start: 20141231
  70. VIAGRA [Concomitant]
     Active Substance: SILDENAFIL CITRATE
     Dosage: 100.0MG UNKNOWN
     Route: 048
     Dates: start: 20130107
  71. CIALIS [Concomitant]
     Active Substance: TADALAFIL
     Dosage: 20.0MG UNKNOWN
     Route: 048
     Dates: start: 20140304
  72. CLARITIN [Concomitant]
     Active Substance: LORATADINE
     Dosage: 20.0MG UNKNOWN
     Route: 048
     Dates: start: 20140304
  73. ZYRTEC [Concomitant]
     Active Substance: CETIRIZINE HYDROCHLORIDE
     Dosage: 20.0MG UNKNOWN
     Route: 048
     Dates: start: 20140304
  74. ALLEGRA [Concomitant]
     Active Substance: FEXOFENADINE HYDROCHLORIDE
     Dosage: 20.0MG UNKNOWN
     Route: 048
     Dates: start: 20140304
  75. NASACORT [Concomitant]
     Active Substance: TRIAMCINOLONE ACETONIDE
     Dosage: 20.0MG UNKNOWN
     Route: 048
     Dates: start: 20140304
  76. RHINOCORT [Concomitant]
     Active Substance: BUDESONIDE
     Dosage: 20.0MG UNKNOWN
     Route: 048
     Dates: start: 20140304
  77. VERAMYST [Concomitant]
     Active Substance: FLUTICASONE FUROATE
     Dosage: 20.0MG UNKNOWN
     Route: 048
     Dates: start: 20140304
  78. ELESTAT [Concomitant]
     Active Substance: EPINASTINE HYDROCHLORIDE
     Dosage: 20.0MG UNKNOWN
     Route: 048
     Dates: start: 20140304
  79. DYMISTA [Concomitant]
     Active Substance: AZELASTINE HYDROCHLORIDE\FLUTICASONE PROPIONATE
     Dosage: 20.0MG UNKNOWN
     Route: 048
     Dates: start: 20140304
  80. ATENOLOL [Concomitant]
     Active Substance: ATENOLOL
     Dosage: 20.0MG UNKNOWN
     Route: 048
     Dates: start: 20140304
  81. OZETON [Concomitant]
     Dosage: 20.0MG UNKNOWN
     Route: 048
     Dates: start: 20140304
  82. ALBUTEROL\IPRATROPIUM BROMIDE [Concomitant]
     Active Substance: ALBUTEROL\IPRATROPIUM BROMIDE
     Dosage: 20.0MG UNKNOWN
     Route: 048
     Dates: start: 20140304
  83. KETOCONAZOLE [Concomitant]
     Active Substance: KETOCONAZOLE
     Dosage: 20.0MG UNKNOWN
     Route: 048
     Dates: start: 20140304
  84. PROVENTIL [Concomitant]
     Active Substance: ALBUTEROL
     Dosage: 20.0MG UNKNOWN
     Route: 048
     Dates: start: 20140304
  85. LOPERAMIDE [Concomitant]
     Active Substance: LOPERAMIDE
  86. AMPICILLIN SODIUM\SULBACTAM SODIUM [Concomitant]
     Active Substance: AMPICILLIN SODIUM\SULBACTAM SODIUM
  87. ALUMINIUM HYDROXIDE/SIMETICONE/MAGNESIUM CARBONATE [Concomitant]
  88. CEPACOL [Concomitant]
     Active Substance: BENZOCAINE
  89. MAGNESIUM HYDROXIDE [Concomitant]
     Active Substance: MAGNESIUM HYDROXIDE
  90. PROMETHAZINE [Concomitant]
     Active Substance: PROMETHAZINE HYDROCHLORIDE
  91. TRAZODONE [Concomitant]
     Active Substance: TRAZODONE HYDROCHLORIDE
  92. CLOBETASOL [Concomitant]
     Active Substance: CLOBETASOL
  93. ZEMURON [Concomitant]
     Active Substance: ROCURONIUM BROMIDE
  94. ROBINUL [Concomitant]
     Active Substance: GLYCOPYRROLATE
  95. CIPROFLOXACIN [Concomitant]
     Active Substance: CIPROFLOXACIN
  96. POTASSIUM CHLORIDE [Concomitant]
     Active Substance: POTASSIUM CHLORIDE
  97. ACETAMINOPHEN [Concomitant]
     Active Substance: ACETAMINOPHEN
  98. DIPHENHYDRAMINE HYDROCHLORIDE [Concomitant]
     Active Substance: DIPHENHYDRAMINE HYDROCHLORIDE
  99. FENTANYL CITRATE [Concomitant]
     Active Substance: FENTANYL CITRATE
  100. MIDAZOLAM HYDROCHLORIDE [Concomitant]
     Active Substance: MIDAZOLAM HYDROCHLORIDE
  101. MORPHINE SULFATE [Concomitant]
     Active Substance: MORPHINE SULFATE
  102. PHENYLEPHRINE HYDROCHLORIDE [Concomitant]
     Active Substance: PHENYLEPHRINE HYDROCHLORIDE
  103. PROPOFOL [Concomitant]
     Active Substance: PROPOFOL
  104. ASCORBIC ACID [Concomitant]
     Active Substance: ASCORBIC ACID
  105. ENOXAPARIN [Concomitant]
     Active Substance: ENOXAPARIN
  106. PROZAC [Concomitant]
     Active Substance: FLUOXETINE HYDROCHLORIDE
  107. VITAMIN D2 [Concomitant]
     Active Substance: ERGOCALCIFEROL
  108. DOXEPIN [Concomitant]
     Active Substance: DOXEPIN
  109. VICODIN [Concomitant]
     Active Substance: ACETAMINOPHEN\HYDROCODONE BITARTRATE
     Route: 065
     Dates: start: 20190513
  110. ONDANSETRON [Concomitant]
     Active Substance: ONDANSETRON
     Route: 065
     Dates: start: 20190513
  111. LACTIC ACID [Concomitant]
     Active Substance: LACTIC ACID
     Route: 065
     Dates: start: 20190513
  112. SALINE [Concomitant]
     Active Substance: SODIUM CHLORIDE
     Route: 065
     Dates: start: 20190513
  113. HYDROXYZINE HYDROCHLORIDE [Concomitant]
     Active Substance: HYDROXYZINE HYDROCHLORIDE
  114. SELENIUM SULFATE [Concomitant]
  115. ALFUZOSIN [Concomitant]
     Active Substance: ALFUZOSIN
  116. ACETAMINOPHEN\HYDROCODONE BITARTRATE [Concomitant]
     Active Substance: ACETAMINOPHEN\HYDROCODONE BITARTRATE
  117. TAMSULOSIN [Concomitant]
     Active Substance: TAMSULOSIN
  118. VALACYCLOVIR [Concomitant]
     Active Substance: VALACYCLOVIR HYDROCHLORIDE
     Indication: Infection
  119. LISINOPRIL [Concomitant]
     Active Substance: LISINOPRIL
     Indication: Infection
     Dates: start: 2013
  120. PROPRANOLOL [Concomitant]
     Active Substance: PROPRANOLOL HYDROCHLORIDE
     Indication: Tremor
     Dates: start: 2013

REACTIONS (16)
  - Fournier^s gangrene [Unknown]
  - Necrotising fasciitis [Unknown]
  - Scrotal abscess [Unknown]
  - Tooth abscess [Unknown]
  - Cellulitis of male external genital organ [Unknown]
  - Cellulitis staphylococcal [Unknown]
  - Cellulitis [Unknown]
  - Leukocytosis [Unknown]
  - Abscess limb [Unknown]
  - Gangrene [Unknown]
  - Testicular abscess [Unknown]
  - Groin abscess [Unknown]
  - Sepsis [Unknown]
  - Genital abscess [Unknown]
  - Anal abscess [Unknown]
  - Emotional distress [Unknown]

NARRATIVE: CASE EVENT DATE: 20140101
